FAERS Safety Report 4984970-9 (Version None)
Quarter: 2006Q1

REPORT INFORMATION
  Report Type: 
  Country: None (occurrence: None)
  Receive Date: 20060309
  Receipt Date: 20050419
  Transmission Date: 20060701
  Serious: Yes (Other)
  Sender: FDA-Public Use
  Company Number: 402452

PATIENT
  Sex: 0

DRUGS (3)
  1. ACCUTANE [Suspect]
     Dosage: UNK
     Route: 065
     Dates: start: 20040115, end: 20040704
  2. ISOTRETINOIN [Suspect]
     Dosage: UNK
     Route: 065
     Dates: start: 20040115, end: 20040704
  3. ORAL CONTRACEPTIVE PILL (ORAL CONTRACEPTIVE NOS) [Concomitant]

REACTIONS (2)
  - DRUG EXPOSURE DURING PREGNANCY [None]
  - PREGNANCY [None]
